FAERS Safety Report 4364735-1 (Version None)
Quarter: 2004Q2

REPORT INFORMATION
  Report Type: 
  Country: None (occurrence: None)
  Receive Date: 20040525
  Receipt Date: 20040525
  Transmission Date: 20050107
  Serious: Yes (Disabling)
  Sender: FDA-Public Use
  Company Number: None

PATIENT
  Sex: Male

DRUGS (2)
  1. ULTRAVIST 150 [Suspect]
     Indication: CATHETERISATION CARDIAC
     Dosage: 100 ML ONE TIME INTRA-ARTERIAL
     Route: 013
     Dates: start: 20040317, end: 20040317
  2. ULTRAVIST 150 [Suspect]
     Indication: MYOCARDIAL INFARCTION
     Dosage: 100 ML ONE TIME INTRA-ARTERIAL
     Route: 013
     Dates: start: 20040317, end: 20040317

REACTIONS (3)
  - ANURIA [None]
  - HAEMODIALYSIS [None]
  - NEPHROPATHY [None]
